FAERS Safety Report 8212736-5 (Version None)
Quarter: 2012Q1

REPORT INFORMATION
  Report Type: 
  Country: None (occurrence: None)
  Receive Date: 20120315
  Receipt Date: 20120307
  Transmission Date: 20120608
  Serious: Yes (Hospitalization, Disabling, Other)
  Sender: FDA-Public Use
  Company Number: US-MERCK-1111USA01298

PATIENT
  Age: 61 Year
  Sex: Female
  Weight: 54 kg

DRUGS (8)
  1. FOSAMAX [Suspect]
     Indication: OSTEOPOROSIS PROPHYLAXIS
     Route: 048
     Dates: start: 20030312, end: 20080101
  2. CHOLECALCIFEROL [Concomitant]
     Route: 065
     Dates: start: 19910101
  3. ALENDRONATE SODIUM [Suspect]
     Indication: OSTEOPOROSIS
     Route: 048
     Dates: start: 20081108, end: 20091001
  4. FOSAMAX [Suspect]
     Indication: OSTEOPOROSIS
     Route: 048
     Dates: start: 20080605
  5. ALENDRONATE SODIUM [Suspect]
     Route: 048
     Dates: start: 20091212
  6. FOSAMAX [Suspect]
     Route: 048
     Dates: end: 20100101
  7. FOSAMAX [Suspect]
     Route: 048
     Dates: start: 19990101
  8. CALCIUM (UNSPECIFIED) AND VITAMIN D (UNSPECIFIED) [Concomitant]
     Route: 065
     Dates: start: 19910101

REACTIONS (27)
  - ANAEMIA POSTOPERATIVE [None]
  - BALANCE DISORDER [None]
  - HYPERCHOLESTEROLAEMIA [None]
  - SINUS BRADYCARDIA [None]
  - HYPERTENSION [None]
  - OSTEOARTHRITIS [None]
  - HIP FRACTURE [None]
  - WOUND HAEMORRHAGE [None]
  - CARDIAC HYPERTROPHY [None]
  - CARDIAC MURMUR [None]
  - HAEMORRHAGIC ANAEMIA [None]
  - HYPONATRAEMIA [None]
  - SKIN CANCER [None]
  - CELLULITIS [None]
  - CHOLELITHIASIS [None]
  - FOOT DEFORMITY [None]
  - LOW TURNOVER OSTEOPATHY [None]
  - ARTHROPATHY [None]
  - HYPERTHYROIDISM [None]
  - ANAEMIA OF CHRONIC DISEASE [None]
  - FALL [None]
  - GOITRE [None]
  - POST PROCEDURAL INFECTION [None]
  - MITRAL VALVE INCOMPETENCE [None]
  - ARTHRALGIA [None]
  - FATIGUE [None]
  - LEFT VENTRICULAR HYPERTROPHY [None]
